FAERS Safety Report 8011661-2 (Version None)
Quarter: 2011Q4

REPORT INFORMATION
  Report Type: 
  Country: None (occurrence: None)
  Receive Date: 20111228
  Receipt Date: 20111222
  Transmission Date: 20120403
  Serious: Yes (Hospitalization)
  Sender: FDA-Public Use
  Company Number: US-ELI_LILLY_AND_COMPANY-US201109007154

PATIENT
  Sex: Male
  Weight: 64.1 kg

DRUGS (3)
  1. HUMATROPE [Suspect]
     Indication: DWARFISM
     Dosage: 3.5 MG, 6 DAYS A WEEK
     Route: 058
     Dates: start: 20060915, end: 20110731
  2. FEMARA [Concomitant]
     Dosage: 2.5 MG, QD
     Dates: start: 20090127, end: 20110714
  3. HUMATROPE [Suspect]
     Dosage: UNK
     Dates: start: 20080701

REACTIONS (2)
  - EPIPHYSIOLYSIS [None]
  - FEMUR FRACTURE [None]
